FAERS Safety Report 20218040 (Version 3)
Quarter: 2022Q3

REPORT INFORMATION
  Report Type: Spontaneous
  Country: US (occurrence: US)
  Receive Date: 20211222
  Receipt Date: 20220801
  Transmission Date: 20221026
  Serious: No
  Sender: FDA-Public Use
  Company Number: US-MYOVANT SCIENCES GMBH-2021MYSCI1100435

PATIENT
  Sex: Female

DRUGS (5)
  1. MYFEMBREE [Suspect]
     Active Substance: ESTRADIOL HEMIHYDRATE\NORETHINDRONE ACETATE\RELUGOLIX
     Indication: Uterine leiomyoma
     Dosage: 1 TAB, QD
     Route: 048
     Dates: start: 20211102, end: 20211128
  2. MYFEMBREE [Suspect]
     Active Substance: ESTRADIOL HEMIHYDRATE\NORETHINDRONE ACETATE\RELUGOLIX
     Indication: Heavy menstrual bleeding
     Dosage: 1 TAB, QD
     Route: 048
     Dates: start: 202201
  3. MYFEMBREE [Suspect]
     Active Substance: ESTRADIOL HEMIHYDRATE\NORETHINDRONE ACETATE\RELUGOLIX
     Indication: Iron deficiency anaemia
     Dosage: 1 TAB, QD
     Route: 048
  4. EXCEDRIN                           /00110301/ [Concomitant]
     Indication: Migraine
     Dosage: UNK, PRN
     Route: 048
  5. ALEVE [Concomitant]
     Active Substance: NAPROXEN SODIUM
     Indication: Migraine
     Dosage: UNK, PRN
     Route: 048

REACTIONS (5)
  - Heavy menstrual bleeding [Recovered/Resolved]
  - Mood swings [Recovered/Resolved]
  - Hot flush [Recovered/Resolved]
  - Therapy interrupted [Unknown]
  - Insurance issue [Unknown]
